FAERS Safety Report 20278664 (Version 3)
Quarter: 2022Q1

REPORT INFORMATION
  Report Type: Report from Study
  Country: ZA (occurrence: ZA)
  Receive Date: 20220103
  Receipt Date: 20220202
  Transmission Date: 20220423
  Serious: Yes (Other)
  Sender: FDA-Public Use
  Company Number: ZA-NOVARTISPH-NVSC2021ZA299748

PATIENT
  Age: 49 Year
  Sex: Male

DRUGS (1)
  1. COSENTYX [Suspect]
     Active Substance: SECUKINUMAB
     Indication: Rheumatoid arthritis
     Dosage: 150 MG, QMO
     Route: 058
     Dates: start: 20210914

REACTIONS (5)
  - Rheumatoid arthritis [Unknown]
  - Cough [Unknown]
  - Psoriasis [Unknown]
  - Incorrect dose administered [Unknown]
  - Product use in unapproved indication [Unknown]
